FAERS Safety Report 17646975 (Version 2)
Quarter: 2020Q2

REPORT INFORMATION
  Report Type: Report from Study
  Country: AU (occurrence: AU)
  Receive Date: 20200408
  Receipt Date: 20200527
  Transmission Date: 20200713
  Serious: Yes (Other)
  Sender: FDA-Public Use
  Company Number: AU-PFIZER INC-2019412895

PATIENT
  Age: 9 Year
  Sex: Male
  Weight: 29.1 kg

DRUGS (12)
  1. TOPOTECAN [Concomitant]
     Active Substance: TOPOTECAN HYDROCHLORIDE
     Indication: NEUROBLASTOMA RECURRENT
     Dosage: UNK, 2 CYCLES
  2. VINCRISTINE [Concomitant]
     Active Substance: VINCRISTINE
     Indication: NEUROBLASTOMA RECURRENT
     Dosage: UNK, 1 CYCLE
  3. XALKORI [Suspect]
     Active Substance: CRIZOTINIB
     Indication: NEUROBLASTOMA RECURRENT
     Dosage: 200 MG, (200 MG/M2) 2X/DAY
     Route: 048
     Dates: end: 20200229
  4. SODIUM BICARBONATE. [Concomitant]
     Active Substance: SODIUM BICARBONATE
     Dosage: UNK
  5. CYCLOPHOSPHAMIDE. [Concomitant]
     Active Substance: CYCLOPHOSPHAMIDE
     Indication: NEUROBLASTOMA RECURRENT
     Dosage: UNK, 2 CYCLES + 1 CYCLE
  6. COTRIMOXAZOLE [Concomitant]
     Active Substance: SULFAMETHOXAZOLE\TRIMETHOPRIM
     Indication: PROPHYLAXIS
     Dosage: UNK
  7. ACICLOVIR [Concomitant]
     Active Substance: ACYCLOVIR
     Indication: PROPHYLAXIS
     Dosage: UNK
  8. CARBOPLATIN. [Suspect]
     Active Substance: CARBOPLATIN
     Indication: NEUROBLASTOMA RECURRENT
     Dosage: UNK, 2 CYCLES
  9. ETOPOSIDE. [Concomitant]
     Active Substance: ETOPOSIDE
     Indication: NEUROBLASTOMA RECURRENT
     Dosage: UNK, 2 CYCLES
  10. DOXORUBICIN [Concomitant]
     Active Substance: DOXORUBICIN
     Indication: NEUROBLASTOMA RECURRENT
     Dosage: UNK, 1 CYCLE
  11. NILSTAT [NYSTATIN] [Concomitant]
     Dosage: UNK
  12. GABAPENTIN. [Concomitant]
     Active Substance: GABAPENTIN
     Indication: BONE PAIN
     Dosage: 200 MG, 2X/DAY
     Route: 048

REACTIONS (25)
  - Neutrophil count decreased [Unknown]
  - Blood pressure diastolic decreased [Unknown]
  - Hepatic function abnormal [Recovering/Resolving]
  - White blood cell count decreased [Unknown]
  - Blood creatinine decreased [Unknown]
  - Blood urea decreased [Unknown]
  - Protein total decreased [Unknown]
  - Haematocrit decreased [Unknown]
  - Aspartate aminotransferase increased [Unknown]
  - Mean cell haemoglobin concentration increased [Unknown]
  - Blood potassium decreased [Unknown]
  - Mean cell haemoglobin increased [Unknown]
  - Thrombocytopenia [Recovering/Resolving]
  - Monocyte count increased [Unknown]
  - Eosinophil count decreased [Unknown]
  - Lymphocyte count decreased [Unknown]
  - Blood albumin decreased [Unknown]
  - Alanine aminotransferase increased [Unknown]
  - Mean platelet volume decreased [Unknown]
  - Red blood cell count decreased [Unknown]
  - Red cell distribution width increased [Unknown]
  - Mean cell volume increased [Unknown]
  - Haemoglobin decreased [Unknown]
  - Gamma-glutamyltransferase increased [Unknown]
  - Blood bilirubin increased [Unknown]

NARRATIVE: CASE EVENT DATE: 20200325
